FAERS Safety Report 20589552 (Version 5)
Quarter: 2022Q2

REPORT INFORMATION
  Report Type: Report from Study
  Country: US (occurrence: US)
  Receive Date: 20220314
  Receipt Date: 20220430
  Transmission Date: 20220721
  Serious: Yes (Hospitalization)
  Sender: FDA-Public Use
  Company Number: US-NOVARTISTESTPH-NVSC2022US058850

PATIENT
  Sex: Female

DRUGS (1)
  1. ENTRESTO [Suspect]
     Active Substance: SACUBITRIL\VALSARTAN
     Indication: Product used for unknown indication
     Dosage: 1 DOSAGE FORM, BID (24/26 MG)
     Route: 065

REACTIONS (10)
  - Atrial fibrillation [Unknown]
  - Diarrhoea [Unknown]
  - Chest pain [Unknown]
  - Sleep apnoea syndrome [Unknown]
  - Eating disorder [Unknown]
  - Illness [Unknown]
  - Dyspnoea [Unknown]
  - Muscle spasms [Unknown]
  - Asthenia [Unknown]
  - Dizziness [Unknown]
